FAERS Safety Report 7250208-5 (Version None)
Quarter: 2011Q1

REPORT INFORMATION
  Report Type: 
  Country: None (occurrence: None)
  Receive Date: 20110128
  Receipt Date: 20110113
  Transmission Date: 20110831
  Serious: Yes (Other)
  Sender: FDA-Public Use
  Company Number: JP-BAYER-2011-001865

PATIENT
  Age: 75 Year
  Sex: Male

DRUGS (7)
  1. NEXAVAR [Suspect]
     Indication: HEPATIC NEOPLASM MALIGNANT
     Dosage: 400 MG, BID
     Route: 048
     Dates: start: 20101228
  2. MEDICON [Concomitant]
     Indication: NASOPHARYNGITIS
     Route: 048
  3. COLDRIN [Concomitant]
     Indication: NASOPHARYNGITIS
     Dosage: UNK
     Route: 048
     Dates: end: 20110105
  4. PREDONINE [Concomitant]
     Indication: NASOPHARYNGITIS
     Route: 048
  5. BUP-4 [Concomitant]
     Route: 048
  6. ASVERIN [Concomitant]
     Indication: NASOPHARYNGITIS
     Dosage: DAILY DOSE 6 DF
     Route: 048
  7. CODEINE SULFATE [Concomitant]
     Dosage: UNK
     Route: 048
     Dates: start: 20110106

REACTIONS (2)
  - MUSCLE TWITCHING [None]
  - CONVULSION [None]
